FAERS Safety Report 21987705 (Version 2)
Quarter: 2023Q1

REPORT INFORMATION
  Report Type: Report from Study
  Country: BR (occurrence: BR)
  Receive Date: 20230214
  Receipt Date: 20230214
  Transmission Date: 20230417
  Serious: Yes (Other)
  Sender: FDA-Public Use
  Company Number: BR-UCBSA-2023007097

PATIENT
  Age: 37 Year
  Sex: Male

DRUGS (7)
  1. LACOSAMIDE [Suspect]
     Active Substance: LACOSAMIDE
     Indication: Epilepsy
     Dosage: UNK, 100 MG/50 MG
     Dates: start: 20190101
  2. LACOSAMIDE [Suspect]
     Active Substance: LACOSAMIDE
     Dosage: 200 MG MORNING AND 200 MG EVENING
  3. KEPPRA [Suspect]
     Active Substance: LEVETIRACETAM
     Indication: Epilepsy
     Dosage: 250 MILLIGRAM, 2X/DAY (BID)
  4. RIVOTRIL [Concomitant]
     Active Substance: CLONAZEPAM
     Indication: Feeling abnormal
     Dosage: 0.25 MILLIGRAM, ONCE DAILY (QD), AT NIGHT
     Route: 060
     Dates: start: 20221222
  5. RIVOTRIL [Concomitant]
     Active Substance: CLONAZEPAM
     Indication: Emotional disorder
  6. CLOBAZAM [Concomitant]
     Active Substance: CLOBAZAM
     Indication: Epilepsy
     Dosage: 10 MILLIGRAM, ONCE DAILY (QD) AT NIGHT
     Route: 048
     Dates: start: 20221222
  7. CLOBAZAM [Concomitant]
     Active Substance: CLOBAZAM
     Dosage: 20 MILLIGRAM

REACTIONS (3)
  - Seizure [Not Recovered/Not Resolved]
  - Brain neoplasm [Unknown]
  - Brain operation [Unknown]

NARRATIVE: CASE EVENT DATE: 20221001
